FAERS Safety Report 17851300 (Version 1)
Quarter: 2020Q2

REPORT INFORMATION
  Report Type: Spontaneous
  Country: CA (occurrence: CA)
  Receive Date: 20200602
  Receipt Date: 20200602
  Transmission Date: 20200714
  Serious: Yes (Hospitalization, Other)
  Sender: FDA-Public Use
  Company Number: CA-TEVA-2020-CA-1242875

PATIENT
  Age: 40 Year
  Sex: Female

DRUGS (4)
  1. MYCOPHENOLATE MOFETIL. [Suspect]
     Active Substance: MYCOPHENOLATE MOFETIL
     Indication: PRODUCT USED FOR UNKNOWN INDICATION
     Route: 065
  2. DESOXIMETASONE. [Concomitant]
     Active Substance: DESOXIMETASONE
  3. DEXILANT [Concomitant]
     Active Substance: DEXLANSOPRAZOLE
  4. CODEINE [Concomitant]
     Active Substance: CODEINE

REACTIONS (5)
  - Ill-defined disorder [Recovered/Resolved]
  - Treatment failure [Recovered/Resolved]
  - Vasculitis [Recovered/Resolved]
  - Pneumonia [Recovered/Resolved]
  - Polychondritis [Recovered/Resolved]
